FAERS Safety Report 8335203-7 (Version None)
Quarter: 2012Q2

REPORT INFORMATION
  Report Type: 
  Country: None (occurrence: None)
  Receive Date: 20120503
  Receipt Date: 20120427
  Transmission Date: 20120825
  Serious: Yes (Other)
  Sender: FDA-Public Use
  Company Number: NL-JNJFOC-20120204542

PATIENT
  Age: 81 Year
  Sex: Female

DRUGS (7)
  1. SIMPONI [Suspect]
     Indication: RHEUMATOID ARTHRITIS
     Route: 058
     Dates: start: 20101001, end: 20110301
  2. PANTOPRAZOLE [Concomitant]
  3. PREDNISONE TAB [Concomitant]
  4. NAPROXEN [Concomitant]
  5. ACTONEL [Concomitant]
  6. TRAMADOL HCL [Concomitant]
  7. CALCIUM CARBONATE [Concomitant]

REACTIONS (1)
  - TEMPORAL ARTERITIS [None]
